FAERS Safety Report 8430596-4 (Version None)
Quarter: 2012Q2

REPORT INFORMATION
  Report Type: 
  Country: None (occurrence: None)
  Receive Date: 20120606
  Receipt Date: 20120606
  Transmission Date: 20120825
  Serious: No
  Sender: FDA-Public Use
  Company Number: None

PATIENT
  Age: 63 Year
  Sex: Male
  Weight: 82.36 kg

DRUGS (1)
  1. HYDROMORPHONE HCL [Suspect]
     Dosage: ML SQ
     Route: 058
     Dates: start: 20120319, end: 20120319

REACTIONS (2)
  - PRURITUS [None]
  - URTICARIA [None]
